FAERS Safety Report 17760536 (Version 2)
Quarter: 2025Q3

REPORT INFORMATION
  Report Type: Spontaneous
  Country: GB (occurrence: GB)
  Receive Date: 20200508
  Receipt Date: 20250715
  Transmission Date: 20251021
  Serious: Yes (Other)
  Sender: TORRENT PHARMA INC.
  Company Number: None

PATIENT
  Age: 32 Year
  Sex: Female

DRUGS (11)
  1. MONTELUKAST [Suspect]
     Active Substance: MONTELUKAST
     Indication: Asthma
     Route: 065
  2. BUDESONIDE\FORMOTEROL [Suspect]
     Active Substance: BUDESONIDE\FORMOTEROL
     Indication: Asthma
     Dosage: 5 DOSAGE FORMS DAILY; BUDESONIDE/FORMOTEROL 400 MICROG/12 MICROG, DRY POWDER INHALER, 1 DOSAGE FORM
     Route: 055
  3. FLUTICASONE [Suspect]
     Active Substance: FLUTICASONE
     Indication: Product used for unknown indication
     Dosage: 2 DOSAGE FORM, ONCE A DAY
     Route: 065
  4. FLUTICASONE\FORMOTEROL [Suspect]
     Active Substance: FLUTICASONE\FORMOTEROL
     Indication: Asthma
     Dosage: 4 DOSAGE FORMS DAILY; PRESSURISED METERED DOSE INHALER 2PUFFS TWICE DAILY THROUGH A SPACER; 1 DOSAGE
     Route: 055
  5. MEPOLIZUMAB [Suspect]
     Active Substance: MEPOLIZUMAB
     Indication: Asthma
     Route: 065
  6. MOMETASONE [Suspect]
     Active Substance: MOMETASONE
     Indication: Rhinitis allergic
     Route: 045
  7. OMEPRAZOLE [Concomitant]
     Active Substance: OMEPRAZOLE
     Indication: Gastrooesophageal reflux disease
     Route: 065
  8. PREDNISOLONE [Suspect]
     Active Substance: PREDNISOLONE
     Indication: Asthma
     Dosage: 4 MILLIGRAM, ONCE A DAY
     Route: 048
  9. RESLIZUMAB [Suspect]
     Active Substance: RESLIZUMAB
     Indication: Asthma
     Route: 065
  10. ALBUTEROL [Concomitant]
     Active Substance: ALBUTEROL
     Indication: Asthma
     Route: 055
  11. TIOTROPIUM [Concomitant]
     Active Substance: TIOTROPIUM
     Indication: Asthma
     Route: 055

REACTIONS (9)
  - Headache [Unknown]
  - Paradoxical drug reaction [Unknown]
  - Oropharyngeal pain [Unknown]
  - Alopecia [Recovering/Resolving]
  - Urticaria [Unknown]
  - Myalgia [Unknown]
  - Asthma [Recovering/Resolving]
  - Drug ineffective [Unknown]
  - Adrenal suppression [Unknown]
